FAERS Safety Report 9963491 (Version 2)
Quarter: 2014Q1

REPORT INFORMATION
  Report Type: Report from Study
  Country: DE (occurrence: DE)
  Receive Date: 20140305
  Receipt Date: 20140305
  Transmission Date: 20141002
  Serious: Yes (Hospitalization)
  Sender: FDA-Public Use
  Company Number: PHHO2011DE12488

PATIENT
  Sex: 0

DRUGS (5)
  1. EVEROLIMUS [Suspect]
     Indication: HEPATOCELLULAR CARCINOMA
     Dosage: 7.5 MG, QD
     Route: 048
     Dates: start: 20110607, end: 20110718
  2. EVEROLIMUS [Suspect]
     Dosage: 7.5 MG, QD
     Route: 048
     Dates: start: 20110721, end: 20110805
  3. SPIRONOLACTONE [Concomitant]
  4. LYRICA [Concomitant]
  5. IBUPROFEN [Concomitant]

REACTIONS (1)
  - Post thrombotic syndrome [Recovering/Resolving]
